FAERS Safety Report 11390227 (Version 1)
Quarter: 2015Q3

REPORT INFORMATION
  Report Type: Spontaneous
  Country: US (occurrence: US)
  Receive Date: 20150818
  Receipt Date: 20150818
  Transmission Date: 20151125
  Serious: No
  Sender: FDA-Public Use
  Company Number: US-ROCHE-1416654

PATIENT
  Age: 54 Year
  Sex: Female

DRUGS (4)
  1. PEGASYS [Suspect]
     Active Substance: PEGINTERFERON ALFA-2A
     Indication: CHRONIC HEPATITIS C
     Route: 058
     Dates: start: 20140501
  2. SOVALDI [Suspect]
     Active Substance: SOFOSBUVIR
     Indication: CHRONIC HEPATITIS C
     Route: 065
     Dates: start: 20140501
  3. RIBASPHERE [Suspect]
     Active Substance: RIBAVIRIN
     Indication: CHRONIC HEPATITIS C
     Dosage: DIVIDED DOSES (600/400)
     Route: 048
     Dates: start: 20140501
  4. ATIVAN [Concomitant]
     Active Substance: LORAZEPAM
     Indication: ANXIETY

REACTIONS (12)
  - Asthenia [Unknown]
  - Oropharyngeal pain [Unknown]
  - Fatigue [Unknown]
  - Crying [Unknown]
  - Pollakiuria [Unknown]
  - Anaemia [Unknown]
  - Depression [Unknown]
  - Mood swings [Unknown]
  - Dysuria [Unknown]
  - Stress [Unknown]
  - Tearfulness [Unknown]
  - Vision blurred [Unknown]

NARRATIVE: CASE EVENT DATE: 201405
